FAERS Safety Report 10412281 (Version 1)
Quarter: 2014Q3

REPORT INFORMATION
  Report Type: Spontaneous
  Country: US (occurrence: None)
  Receive Date: 20140826
  Receipt Date: 20140826
  Transmission Date: 20150326
  Serious: Yes (Other)
  Sender: FDA-Public Use
  Company Number: None

PATIENT
  Age: 47 Year
  Sex: Female
  Weight: 123.38 kg

DRUGS (2)
  1. SUBOXONE [Suspect]
     Active Substance: BUPRENORPHINE HYDROCHLORIDE\NALOXONE HYDROCHLORIDE
     Dosage: 2MG/0.5MG (2) ?Q DAY?SUBLIQUEL
     Route: 060
  2. SUBOXONE [Suspect]
     Active Substance: BUPRENORPHINE HYDROCHLORIDE\NALOXONE HYDROCHLORIDE
     Indication: DRUG DEPENDENCE
     Dosage: 8MG/2MG (2) Q DAY?Q DAY ?SUBLIQUEL
     Route: 060
     Dates: start: 20140613

REACTIONS (7)
  - Migraine [None]
  - Fatigue [None]
  - Menstruation irregular [None]
  - Thrombosis [None]
  - Abdominal pain [None]
  - Increased appetite [None]
  - Vomiting [None]

NARRATIVE: CASE EVENT DATE: 20140613
